FAERS Safety Report 4680705-8 (Version None)
Quarter: 2005Q2

REPORT INFORMATION
  Report Type: 
  Country: None (occurrence: None)
  Receive Date: 20050601
  Receipt Date: 20050520
  Transmission Date: 20051028
  Serious: Yes (Hospitalization)
  Sender: FDA-Public Use
  Company Number: 2005077587

PATIENT
  Age: 72 Year
  Sex: Male

DRUGS (4)
  1. NORVASC [Suspect]
     Indication: HYPERTENSION
     Dosage: 5 MG ( 5MG, 1 IN 24 HR), ORAL
     Route: 048
  2. MEXETIL (MEXILETINE HYDROCHLORIDE) [Concomitant]
  3. ISALON (ALDIOXOA) [Concomitant]
  4. BISOPROLOL FUMARATE [Concomitant]

REACTIONS (4)
  - DERMATITIS [None]
  - ERYTHEMA [None]
  - PHOTOSENSITIVITY REACTION [None]
  - RASH PAPULAR [None]
